FAERS Safety Report 6168324-8 (Version None)
Quarter: 2009Q2

REPORT INFORMATION
  Report Type: 
  Country: None (occurrence: None)
  Receive Date: 20090423
  Receipt Date: 20090415
  Transmission Date: 20091009
  Serious: No
  Sender: FDA-Public Use
  Company Number: 245908

PATIENT
  Age: 52 Year
  Sex: Male

DRUGS (4)
  1. CARBOPLATIN [Suspect]
     Indication: METASTATIC SQUAMOUS CELL CARCINOMA
     Dosage: 158 MG, WEEKLY, INTRAVENOUS
     Route: 042
     Dates: start: 20081101, end: 20090401
  2. TYLENOL (CAPLET) [Concomitant]
  3. BENADRYL [Concomitant]
  4. DEXTRAMETHASONE [Concomitant]

REACTIONS (4)
  - ANAPHYLACTIC REACTION [None]
  - FEELING HOT [None]
  - PARAESTHESIA [None]
  - RASH [None]
